FAERS Safety Report 10421091 (Version 1)
Quarter: 2014Q3

REPORT INFORMATION
  Report Type: Spontaneous
  Country: US (occurrence: None)
  Receive Date: 20140722
  Receipt Date: 20140722
  Transmission Date: 20150326
  Serious: No
  Sender: FDA-Public Use
  Company Number: 163-10004-14054364

PATIENT
  Age: 35 Year
  Sex: Male

DRUGS (7)
  1. BABY ASPIRIN (ACETYLSALICYLIC ACID) [Concomitant]
     Active Substance: ASPIRIN
  2. OTEZLA [Suspect]
     Active Substance: APREMILAST
     Indication: PRODUCT USED FOR UNKNOWN INDICATION
     Route: 048
     Dates: start: 20140505
  3. ATENOLOL. [Concomitant]
     Active Substance: ATENOLOL
  4. CHONDROITIN SULFATE (BOVINE)\DIMETHYL SULFONE\GLUCOSAMINE SULFATE [Concomitant]
     Active Substance: CHONDROITIN SULFATE (BOVINE)\DIMETHYL SULFONE\GLUCOSAMINE SULFATE
  5. CELEBREX [Concomitant]
     Active Substance: CELECOXIB
  6. ATORVASTATIN [Concomitant]
     Active Substance: ATORVASTATIN
  7. TAMSULOSIN [Concomitant]
     Active Substance: TAMSULOSIN

REACTIONS (3)
  - Sleep disorder [None]
  - Arthralgia [None]
  - Abnormal dreams [None]

NARRATIVE: CASE EVENT DATE: 20140505
